FAERS Safety Report 5549338-5 (Version None)
Quarter: 2007Q4

REPORT INFORMATION
  Report Type: 
  Country: None (occurrence: None)
  Receive Date: 20071212
  Receipt Date: 20071130
  Transmission Date: 20080405
  Serious: Yes (Other)
  Sender: FDA-Public Use
  Company Number: HQWYE017416DEC04

PATIENT
  Sex: Female
  Weight: 70.82 kg

DRUGS (2)
  1. PREMARIN [Suspect]
     Indication: HORMONE REPLACEMENT THERAPY
     Dosage: NOT SPECIFIED
     Route: 048
     Dates: start: 19920701, end: 19981101
  2. PROVERA [Suspect]
     Indication: HORMONE REPLACEMENT THERAPY
     Dosage: NOT SPECIFIED
     Route: 048
     Dates: start: 19920701, end: 19981101

REACTIONS (4)
  - ANXIETY [None]
  - ARTHRITIS [None]
  - BREAST CANCER METASTATIC [None]
  - DEPRESSION [None]
